FAERS Safety Report 6618164-8 (Version None)
Quarter: 2010Q1

REPORT INFORMATION
  Report Type: 
  Country: None (occurrence: None)
  Receive Date: 20100308
  Receipt Date: 20100222
  Transmission Date: 20100710
  Serious: Yes (Hospitalization)
  Sender: FDA-Public Use
  Company Number: US-ROCHE-688379

PATIENT
  Age: 75 Year
  Sex: Female

DRUGS (6)
  1. BEVACIZUMAB [Suspect]
     Indication: BREAST CANCER
     Dosage: DATE OF MOST RECENT DOSE PRIOR TO SAE: 27 FEBUARY 2010. DOSE AS PER THE PROTOCOL.
     Route: 065
  2. TRASTUZUMAB [Suspect]
     Indication: BREAST CANCER
     Dosage: DATE OF MOST RECENT DOSE PRIOR TO SAE: 05 MARCH 2008. DOSE AS PER THE PROTOCOL.
     Route: 065
  3. EPIRUBICIN [Suspect]
     Indication: BREAST CANCER
     Dosage: DATE OF MOST RECENT DOSE PRIOR TO SAE: 06 FEBUARY 2008. DOSE AS PER THE PROTOCOL.
     Route: 065
  4. CYCLOPHOSPHAMIDE [Suspect]
     Indication: BREAST CANCER
     Dosage: DATE OF MOST RECENT DOSE PRIOR TO SAE: 06 FEBUARY 2008. DOSE AS PER THE PROTOCOL.
     Route: 065
  5. DOCETAXEL [Suspect]
     Indication: BREAST CANCER
     Dosage: DATE OF MOST RECENT DOSE PRIOR TO SAE: 27 FEBUARY 2008. DOSE AS PER THE PROTOCOL.
     Route: 065
  6. ASPIRIN [Concomitant]
     Dosage: DATE LAST GIVEN 07 MARCH 2008

REACTIONS (3)
  - GASTRIC HAEMORRHAGE [None]
  - GASTRIC ULCER [None]
  - HAEMOGLOBIN [None]
